FAERS Safety Report 8424047-3 (Version None)
Quarter: 2012Q2

REPORT INFORMATION
  Report Type: 
  Country: None (occurrence: None)
  Receive Date: 20120608
  Receipt Date: 20110426
  Transmission Date: 20120825
  Serious: No
  Sender: FDA-Public Use
  Company Number: US-ASTRAZENECA-2008UW21792

PATIENT
  Age: 71 Year
  Sex: Female
  Weight: 58.5 kg

DRUGS (16)
  1. CARTIA XT [Concomitant]
     Indication: BLOOD PRESSURE
  2. PERFORMIST [Concomitant]
  3. PULMICORT FLEXHALER [Suspect]
     Dosage: 180 MCG 1 PUFF BID
     Route: 055
     Dates: start: 20110401
  4. PULMICORT FLEXHALER [Suspect]
     Dosage: 180 MCG 1 PUFF BID
     Route: 055
     Dates: start: 20110401
  5. PULMICORT FLEXHALER [Suspect]
     Indication: DYSPNOEA
     Route: 055
  6. SPIRIVA [Concomitant]
  7. PULMICORT FLEXHALER [Suspect]
     Indication: ASTHMA
     Route: 055
  8. PULMICORT FLEXHALER [Suspect]
     Indication: EMPHYSEMA
     Route: 055
  9. PULMICORT FLEXHALER [Suspect]
     Dosage: 180 MCG 1 PUFF BID
     Route: 055
     Dates: start: 20110401
  10. PULMICORT FLEXHALER [Suspect]
     Dosage: 180 MCG 1 PUFF BID
     Route: 055
     Dates: start: 20110401
  11. SYMBICORT [Suspect]
     Indication: CHRONIC OBSTRUCTIVE PULMONARY DISEASE
     Dosage: 320 MCG TWO TIMES A DAY
     Route: 055
  12. LEXAPRO [Concomitant]
  13. PERFOROMIST [Concomitant]
  14. BUDESONIDE NEBULIZATION [Concomitant]
  15. PULMICORT FLEXHALER [Suspect]
     Indication: CHRONIC OBSTRUCTIVE PULMONARY DISEASE
     Route: 055
  16. ADVAIR DISKUS 100/50 [Concomitant]

REACTIONS (4)
  - THROAT IRRITATION [None]
  - DYSPNOEA [None]
  - HEART RATE INCREASED [None]
  - DYSPHONIA [None]
